FAERS Safety Report 21640086 (Version 1)
Quarter: 2022Q4

REPORT INFORMATION
  Report Type: Report from Study
  Country: CO (occurrence: CO)
  Receive Date: 20221124
  Receipt Date: 20221124
  Transmission Date: 20230112
  Serious: Yes (Disabling)
  Sender: FDA-Public Use
  Company Number: CO-ABBVIE-22K-036-4382414-00

PATIENT
  Sex: Female
  Weight: 52 kg

DRUGS (5)
  1. HUMIRA [Suspect]
     Active Substance: ADALIMUMAB
     Indication: Ankylosing spondylitis
     Route: 058
     Dates: end: 20220419
  2. HUMIRA [Suspect]
     Active Substance: ADALIMUMAB
     Route: 058
  3. COVID-19 VACCINE [Concomitant]
     Indication: COVID-19 immunisation
     Dosage: TIME INTERVAL: 1 TOTAL: FIRST DOSE
     Route: 030
  4. COVID-19 VACCINE [Concomitant]
     Indication: COVID-19 immunisation
     Dosage: TIME INTERVAL: 1 TOTAL: SECOND DOSE
     Route: 030
  5. COVID-19 VACCINE [Concomitant]
     Indication: COVID-19 immunisation
     Dosage: TIME INTERVAL: 1 TOTAL: BOOSTER DOSE
     Route: 030

REACTIONS (15)
  - Gait disturbance [Recovering/Resolving]
  - Dysstasia [Recovering/Resolving]
  - Influenza [Not Recovered/Not Resolved]
  - COVID-19 [Recovered/Resolved]
  - Coccydynia [Recovering/Resolving]
  - Gastroenteritis [Recovered/Resolved]
  - Mobility decreased [Recovering/Resolving]
  - Malaise [Recovered/Resolved]
  - Ankylosing spondylitis [Recovering/Resolving]
  - Sitting disability [Recovering/Resolving]
  - Bone pain [Not Recovered/Not Resolved]
  - Osteitis [Not Recovered/Not Resolved]
  - Arthralgia [Not Recovered/Not Resolved]
  - Arthritis [Not Recovered/Not Resolved]
  - Drug ineffective [Recovering/Resolving]

NARRATIVE: CASE EVENT DATE: 20220101
